FAERS Safety Report 6490462 (Version 2)
Quarter: 2013Q4

REPORT INFORMATION
  Report Type: Spontaneous
  Country: CA (occurrence: None)
  Receive Date: 20071123
  Receipt Date: 20131224
  Transmission Date: 20140711
  Serious: Yes (Other)
  Sender: FDA-Public Use
  Company Number: WSDF_00691

PATIENT
  Age: 74 Year
  Sex: Male

DRUGS (3)
  1. WINRHO SDF [Suspect]
     Indication: IMMUNE THROMBOCYTOPENIC PURPURA
     Dates: start: 20071012, end: 20071012
  2. WINRHO SDF [Suspect]
     Indication: IMMUNE THROMBOCYTOPENIC PURPURA
     Dates: start: 20071012, end: 20071012
  3. WINRHO SDF [Suspect]
     Indication: IMMUNE THROMBOCYTOPENIC PURPURA
     Dates: start: 20071012, end: 20071012

REACTIONS (10)
  - Bacterial infection [None]
  - Haemolysis [None]
  - Hypertension [None]
  - Chills [None]
  - Oxygen saturation decreased [None]
  - Blood lactate dehydrogenase abnormal [None]
  - Blood disorder [None]
  - Blood bilirubin abnormal [None]
  - Immune system disorder [None]
  - Immunisation [None]
